FAERS Safety Report 18340010 (Version 2)
Quarter: 2020Q4

REPORT INFORMATION
  Report Type: Spontaneous
  Country: GB (occurrence: GB)
  Receive Date: 20201002
  Receipt Date: 20201013
  Transmission Date: 20210113
  Serious: Yes (Hospitalization)
  Sender: FDA-Public Use
  Company Number: GB-MYLANLABS-2020M1083254

PATIENT
  Age: 56 Year
  Sex: Female

DRUGS (1)
  1. CLOZARIL [Suspect]
     Active Substance: CLOZAPINE
     Indication: SCHIZOPHRENIA
     Dosage: UNK
     Route: 048
     Dates: start: 20190121

REACTIONS (8)
  - Asthenia [Unknown]
  - Somnolence [Unknown]
  - Leukocytosis [Unknown]
  - Contraindicated product prescribed [Unknown]
  - Vomiting [Unknown]
  - Off label use [Unknown]
  - Infection [Unknown]
  - Neutrophilia [Unknown]

NARRATIVE: CASE EVENT DATE: 2020
